FAERS Safety Report 5551287-3 (Version None)
Quarter: 2007Q4

REPORT INFORMATION
  Report Type: 
  Country: None (occurrence: None)
  Receive Date: 20071212
  Receipt Date: 20070525
  Transmission Date: 20080405
  Serious: No
  Sender: FDA-Public Use
  Company Number: US-AMGEN-KDL226496

PATIENT
  Sex: Male

DRUGS (4)
  1. ENBREL [Suspect]
     Indication: RHEUMATOID ARTHRITIS
     Route: 058
     Dates: start: 20070418
  2. PLAQUENIL [Concomitant]
     Route: 048
     Dates: start: 20010101
  3. ARAVA [Concomitant]
     Dates: start: 20060101
  4. METHOTREXATE [Concomitant]
     Route: 048
     Dates: start: 20010101

REACTIONS (1)
  - PHARYNGOLARYNGEAL PAIN [None]
